FAERS Safety Report 9714137 (Version 2)
Quarter: 2015Q3

REPORT INFORMATION
  Report Type: Spontaneous
  Country: US (occurrence: US)
  Receive Date: 20131126
  Receipt Date: 20150803
  Transmission Date: 20151125
  Serious: No
  Sender: FDA-Public Use
  Company Number: US-GILEAD-2008-0019012

PATIENT
  Age: 79 Year
  Sex: Female
  Weight: 48.99 kg

DRUGS (13)
  1. POTASSIUM CHLORIDE. [Concomitant]
     Active Substance: POTASSIUM CHLORIDE
  2. XANAX [Concomitant]
     Active Substance: ALPRAZOLAM
  3. MULTIVITAMIN [Concomitant]
     Active Substance: VITAMINS
  4. PLAVIX [Concomitant]
     Active Substance: CLOPIDOGREL BISULFATE
  5. ABILIFY [Concomitant]
     Active Substance: ARIPIPRAZOLE
  6. DILTIAZEM [Concomitant]
     Active Substance: DILTIAZEM
  7. LEVOXYL [Concomitant]
     Active Substance: LEVOTHYROXINE SODIUM
  8. LASIX [Concomitant]
     Active Substance: FUROSEMIDE
  9. LETAIRIS [Suspect]
     Active Substance: AMBRISENTAN
     Indication: COR PULMONALE CHRONIC
     Route: 048
     Dates: start: 20070826
  10. REVATIO [Concomitant]
     Active Substance: SILDENAFIL CITRATE
  11. ZETIA [Concomitant]
     Active Substance: EZETIMIBE
  12. EFFEXOR [Concomitant]
     Active Substance: VENLAFAXINE HYDROCHLORIDE
  13. VITAMIN B12 [Concomitant]
     Active Substance: CYANOCOBALAMIN

REACTIONS (1)
  - Oedema [None]
